FAERS Safety Report 20064894 (Version 1)
Quarter: 2021Q4

REPORT INFORMATION
  Report Type: Spontaneous
  Country: CN (occurrence: CN)
  Receive Date: 20211112
  Receipt Date: 20211112
  Transmission Date: 20220303
  Serious: Yes (Other)
  Sender: FDA-Public Use
  Company Number: CN-JNJFOC-20211107906

PATIENT
  Age: 41 Year
  Sex: Female

DRUGS (1)
  1. IMBRUVICA [Suspect]
     Active Substance: IBRUTINIB
     Indication: Diffuse large B-cell lymphoma
     Route: 048
     Dates: start: 20191025

REACTIONS (3)
  - Haemophagocytic lymphohistiocytosis [Unknown]
  - Off label use [Unknown]
  - Product use in unapproved indication [Unknown]
